FAERS Safety Report 8137141-1 (Version None)
Quarter: 2012Q1

REPORT INFORMATION
  Report Type: 
  Country: None (occurrence: None)
  Receive Date: 20120215
  Receipt Date: 20120206
  Transmission Date: 20120608
  Serious: Yes (Other)
  Sender: FDA-Public Use
  Company Number: JP-ACCORD-012301

PATIENT
  Age: 23 Year
  Sex: Male

DRUGS (2)
  1. CISPLATIN [Suspect]
  2. ETOPOSIDE [Suspect]

REACTIONS (4)
  - OFF LABEL USE [None]
  - GENERAL PHYSICAL CONDITION ABNORMAL [None]
  - DRUG INEFFECTIVE [None]
  - HYPERSENSITIVITY [None]
